FAERS Safety Report 14138276 (Version 1)
Quarter: 2017Q4

REPORT INFORMATION
  Report Type: Report from Study
  Country: IR (occurrence: IR)
  Receive Date: 20171027
  Receipt Date: 20171027
  Transmission Date: 20180321
  Serious: Yes (Other)
  Sender: FDA-Public Use
  Company Number: IR-PFIZER INC-2017451862

PATIENT

DRUGS (2)
  1. DAUNORUBICIN [Suspect]
     Active Substance: DAUNORUBICIN
     Indication: ACUTE MYELOID LEUKAEMIA
     Dosage: 45 MG/M2, CYCLIC (INDUCTION TREATMENT, BOLUS, DAYS 1 TO 3)
     Route: 040
  2. CYTARABINE. [Suspect]
     Active Substance: CYTARABINE
     Indication: ACUTE MYELOID LEUKAEMIA
     Dosage: 115 MG/M2, 2X/DAY (INDUCTION TREATMENT, CONTINUOUS INFUSION 12 HOURS TWICE DAILY ON DAYS 1 TO 7)
     Route: 042

REACTIONS (1)
  - Cerebral haemorrhage [Unknown]
